FAERS Safety Report 6246275-8 (Version None)
Quarter: 2009Q2

REPORT INFORMATION
  Report Type: 
  Country: None (occurrence: None)
  Receive Date: 20090626
  Receipt Date: 20090615
  Transmission Date: 20091009
  Serious: Yes (Hospitalization, Other)
  Sender: FDA-Public Use
  Company Number: PHHY2009GB21168

PATIENT
  Sex: Female

DRUGS (4)
  1. CLOZARIL [Suspect]
     Indication: SCHIZOPHRENIA
     Dosage: 800 MG DAILY
     Route: 048
     Dates: start: 19970623
  2. VALPROATE SODIUM [Concomitant]
     Indication: SCHIZOPHRENIA
     Dosage: 1200 MG/DAY
  3. LANSOPRAZOLE [Concomitant]
     Indication: GASTROOESOPHAGEAL REFLUX DISEASE
     Dosage: 30 MG, UNK
     Route: 048
  4. NULYTELY [Concomitant]
     Indication: CONSTIPATION
     Dosage: 2 SACHETS PRN
     Route: 048

REACTIONS (5)
  - CONVULSION [None]
  - OBESITY [None]
  - SLEEP APNOEA SYNDROME [None]
  - SYNCOPE [None]
  - WEIGHT INCREASED [None]
